FAERS Safety Report 9161262 (Version 1)
Quarter: 2013Q1

REPORT INFORMATION
  Report Type: Spontaneous
  Country: US (occurrence: US)
  Receive Date: 20130313
  Receipt Date: 20130313
  Transmission Date: 20140127
  Serious: No
  Sender: FDA-Public Use
  Company Number: US-009507513-1303USA002628

PATIENT
  Sex: Female

DRUGS (2)
  1. ASMANEX TWISTHALER [Suspect]
     Dosage: UNK
     Route: 065
     Dates: end: 201207
  2. FORADIL [Concomitant]

REACTIONS (2)
  - Fall [Unknown]
  - Foot fracture [Unknown]
